FAERS Safety Report 21473547 (Version 3)
Quarter: 2024Q4

REPORT INFORMATION
  Report Type: Spontaneous
  Country: IN (occurrence: IN)
  Receive Date: 20221018
  Receipt Date: 20241029
  Transmission Date: 20250115
  Serious: Yes (Death, Hospitalization)
  Sender: PFIZER
  Company Number: IN-PFIZER INC-202201203520

PATIENT
  Age: 62 Year
  Sex: Female

DRUGS (2)
  1. LORLATINIB [Suspect]
     Active Substance: LORLATINIB
     Dosage: 100 MG, 1X/DAY
     Route: 048
  2. LORLATINIB [Suspect]
     Active Substance: LORLATINIB
     Dosage: 25 MG, 1X/DAY
     Route: 048

REACTIONS (3)
  - Death [Fatal]
  - Urinary tract infection [Unknown]
  - Off label use [Unknown]
